FAERS Safety Report 18530124 (Version 2)
Quarter: 2020Q4

REPORT INFORMATION
  Report Type: Spontaneous
  Country: TR (occurrence: TR)
  Receive Date: 20201120
  Receipt Date: 20201208
  Transmission Date: 20210114
  Serious: Yes (Death, Other)
  Sender: FDA-Public Use
  Company Number: TR-GILEAD-2020-0505423

PATIENT
  Age: 21 Year
  Sex: Female

DRUGS (1)
  1. RANOLAZINE. [Suspect]
     Active Substance: RANOLAZINE
     Indication: SUICIDE ATTEMPT
     Dosage: LARGE NUMBER OF TABLETS
     Route: 048

REACTIONS (10)
  - Completed suicide [Fatal]
  - Generalised tonic-clonic seizure [Fatal]
  - Torsade de pointes [Fatal]
  - Electrocardiogram QT prolonged [Fatal]
  - Cardiac arrest [Fatal]
  - Ventricular fibrillation [Fatal]
  - Respiratory failure [Fatal]
  - Ventricular tachycardia [Fatal]
  - Intentional overdose [Fatal]
  - Coma [Fatal]
